FAERS Safety Report 12618704 (Version 4)
Quarter: 2016Q3

REPORT INFORMATION
  Report Type: Report from Study
  Country: JP (occurrence: JP)
  Receive Date: 20160803
  Receipt Date: 20160913
  Transmission Date: 20161109
  Serious: Yes (Death, Life-Threatening, Hospitalization, Disabling)
  Sender: FDA-Public Use
  Company Number: JP-JNJFOC-20160726731

PATIENT
  Age: 80 Year
  Sex: Male

DRUGS (8)
  1. NIFESLOW [Concomitant]
     Route: 048
  2. BAYASPIRIN [Concomitant]
     Active Substance: ASPIRIN
     Route: 048
  3. SELBEX [Concomitant]
     Active Substance: TEPRENONE
     Route: 048
  4. FRANDOL [Concomitant]
     Active Substance: ISOSORBIDE DINITRATE
     Route: 065
  5. ZYTIGA [Suspect]
     Active Substance: ABIRATERONE ACETATE
     Indication: PROSTATE CANCER
     Route: 048
     Dates: start: 20160610, end: 20160726
  6. NICORANDIL [Concomitant]
     Active Substance: NICORANDIL
     Route: 065
  7. DILTIAZEM HYDROCHLORIDE. [Concomitant]
     Active Substance: DILTIAZEM HYDROCHLORIDE
     Route: 065
  8. MUCOSAL-L [Concomitant]
     Route: 048

REACTIONS (1)
  - Hypokalaemia [Fatal]

NARRATIVE: CASE EVENT DATE: 20160726
